FAERS Safety Report 9429450 (Version 1)
Quarter: 2013Q3

REPORT INFORMATION
  Report Type: Spontaneous
  Country: US (occurrence: US)
  Receive Date: 20130730
  Receipt Date: 20130730
  Transmission Date: 20140515
  Serious: No
  Sender: FDA-Public Use
  Company Number: US-ABBOTT-13P-163-1061878-00

PATIENT
  Age: 60 Year
  Sex: Female
  Weight: 61.74 kg

DRUGS (4)
  1. NIASPAN (COATED) [Suspect]
     Indication: BLOOD CHOLESTEROL
     Dates: start: 20130225
  2. NIASPAN (COATED) [Suspect]
     Dates: start: 20121229, end: 20130224
  3. NIASPAN (COATED) [Suspect]
     Dates: start: 20121201, end: 20121229
  4. LIPITOR [Concomitant]
     Indication: PRODUCT USED FOR UNKNOWN INDICATION

REACTIONS (2)
  - Flatulence [Not Recovered/Not Resolved]
  - Diarrhoea [Not Recovered/Not Resolved]
